FAERS Safety Report 11184663 (Version 1)
Quarter: 2015Q2

REPORT INFORMATION
  Report Type: Spontaneous
  Country: PE (occurrence: PE)
  Receive Date: 20150612
  Receipt Date: 20150612
  Transmission Date: 20150821
  Serious: Yes (Other)
  Sender: FDA-Public Use
  Company Number: PE-PFIZER INC-2015182958

PATIENT
  Age: 83 Year
  Sex: Male

DRUGS (2)
  1. XALATAN [Suspect]
     Active Substance: LATANOPROST
     Indication: GLAUCOMA
     Dosage: 1 GTT ON EACH EYE, DAILY
     Route: 047
  2. KRYTANTEK [Concomitant]
     Dosage: 2 GTT ON EACH EYE, DAILY
     Route: 047

REACTIONS (1)
  - Macular degeneration [Not Recovered/Not Resolved]
